FAERS Safety Report 20006994 (Version 3)
Quarter: 2021Q4

REPORT INFORMATION
  Report Type: Spontaneous
  Country: US (occurrence: US)
  Receive Date: 20211028
  Receipt Date: 20211229
  Transmission Date: 20220303
  Serious: No
  Sender: FDA-Public Use
  Company Number: US-KARYOPHARM-2021KPT001294

PATIENT

DRUGS (3)
  1. XPOVIO [Suspect]
     Active Substance: SELINEXOR
     Indication: Plasmacytoma
     Dosage: 80 MG, WEEKLY
     Route: 048
     Dates: start: 20211001, end: 202111
  2. XPOVIO [Suspect]
     Active Substance: SELINEXOR
     Dosage: 80 MG, WEEKLY
     Route: 048
     Dates: start: 20211203
  3. KYPROLIS [Concomitant]
     Active Substance: CARFILZOMIB

REACTIONS (13)
  - Urinary incontinence [Unknown]
  - Taste disorder [Unknown]
  - Swelling [Unknown]
  - Alopecia [Unknown]
  - Hepatic enzyme increased [Unknown]
  - Wheezing [Recovering/Resolving]
  - Nausea [Not Recovered/Not Resolved]
  - Constipation [Unknown]
  - Fatigue [Unknown]
  - Pyrexia [Unknown]
  - Weight decreased [Unknown]
  - Decreased appetite [Unknown]
  - Off label use [Unknown]

NARRATIVE: CASE EVENT DATE: 20210101
